FAERS Safety Report 16667290 (Version 1)
Quarter: 2019Q3

REPORT INFORMATION
  Report Type: Spontaneous
  Country: US (occurrence: US)
  Receive Date: 20190805
  Receipt Date: 20190805
  Transmission Date: 20191004
  Serious: Yes (Hospitalization)
  Sender: FDA-Public Use
  Company Number: US-PFIZER INC-2019327042

PATIENT
  Age: 11 Month
  Sex: Female
  Weight: 8 kg

DRUGS (4)
  1. CARNITINE [Concomitant]
     Active Substance: CARNITINE
     Indication: CARNITINE DEFICIENCY
     Dosage: 2.2 ML, 3X/DAY (2.2ML LIQUID THROUGH G TUBE THREE TIMES A DAY)
  2. ZANTAC [Concomitant]
     Active Substance: RANITIDINE HYDROCHLORIDE
     Indication: GASTROOESOPHAGEAL REFLUX DISEASE
     Dosage: 2 ML, 2X/DAY (2ML TWICE A DAY LIQUID THROUGH G TUBE)
  3. GENOTROPIN [Suspect]
     Active Substance: SOMATROPIN
     Indication: GROWTH HORMONE DEFICIENCY
     Dosage: 0.3 MG, 1X/DAY
     Dates: start: 201905
  4. LEVOTHYROXINE. [Concomitant]
     Active Substance: LEVOTHYROXINE
     Indication: HYPOTHYROIDISM
     Dosage: 0.25 MG, UNK (0.25MG PILL CRUSHED UP AND GIVEN THROUGH G-TUBE)

REACTIONS (7)
  - Food intolerance [Recovering/Resolving]
  - Dehydration [Unknown]
  - Nausea [Unknown]
  - Blood glucose decreased [Recovered/Resolved with Sequelae]
  - Viral infection [Unknown]
  - Vomiting [Unknown]
  - Pain [Unknown]

NARRATIVE: CASE EVENT DATE: 20190706
